FAERS Safety Report 18261163 (Version 1)
Quarter: 2020Q3

REPORT INFORMATION
  Report Type: Spontaneous
  Country: DE (occurrence: DE)
  Receive Date: 20200914
  Receipt Date: 20200914
  Transmission Date: 20201103
  Serious: Yes (Hospitalization, Other)
  Sender: FDA-Public Use
  Company Number: NVSC2020DE249354

PATIENT
  Age: 72 Year
  Sex: Male

DRUGS (1)
  1. ENTRESTO [Suspect]
     Active Substance: SACUBITRIL\VALSARTAN
     Indication: PRODUCT USED FOR UNKNOWN INDICATION
     Dosage: UNK UNK, UNKNOWN (STARTED ON FEB/MAR)
     Route: 065
     Dates: start: 2020

REACTIONS (4)
  - Blood pressure decreased [Unknown]
  - Gait disturbance [Unknown]
  - Vascular occlusion [Unknown]
  - Renal failure [Unknown]
